FAERS Safety Report 4894714-7 (Version None)
Quarter: 2006Q1

REPORT INFORMATION
  Report Type: 
  Country: None (occurrence: None)
  Receive Date: 20060127
  Receipt Date: 20060127
  Transmission Date: 20060701
  Serious: Yes (Life-Threatening, Hospitalization)
  Sender: FDA-Public Use
  Company Number: None

PATIENT
  Age: 69 Year
  Sex: Male
  Weight: 100 kg

DRUGS (10)
  1. DEMEROL [Suspect]
     Indication: ABDOMINAL PAIN
     Dosage: 50MG   STAT   IV
     Route: 042
     Dates: start: 20060126, end: 20060126
  2. PHENERGAN      12.5MG     UNKNOW [Suspect]
     Dosage: 12.5MG   STAT   IV
     Route: 042
     Dates: start: 20040126, end: 20060126
  3. HYDROCHLOROTHIAZIDE [Concomitant]
  4. LISINOPRIL [Concomitant]
  5. ATENOLOL [Concomitant]
  6. SIMVASTATIN [Concomitant]
  7. CIMETIDINE [Concomitant]
  8. ASPIRIN [Concomitant]
  9. FLOMAX [Concomitant]
  10. NITROGLYCERIN [Concomitant]

REACTIONS (6)
  - ABNORMAL BEHAVIOUR [None]
  - AGITATION [None]
  - CONFUSIONAL STATE [None]
  - DYSPNOEA [None]
  - HEART RATE INCREASED [None]
  - RESPIRATORY RATE INCREASED [None]
